FAERS Safety Report 5887162-4 (Version None)
Quarter: 2008Q3

REPORT INFORMATION
  Report Type: 
  Country: None (occurrence: None)
  Receive Date: 20080915
  Receipt Date: 20080902
  Transmission Date: 20090109
  Serious: Yes (Other)
  Sender: FDA-Public Use
  Company Number: GXKR2008SE08368

PATIENT

DRUGS (4)
  1. CITALOPRAM HYDROBROMIDE [Suspect]
     Dosage: , TRANSPLACENTAL
     Route: 064
  2. AMOXICILLIN [Concomitant]
  3. PENICILLIN V [Concomitant]
  4. ACETAMINOPHEN [Concomitant]

REACTIONS (2)
  - MATERNAL DRUGS AFFECTING FOETUS [None]
  - PERSISTENT FOETAL CIRCULATION [None]
